FAERS Safety Report 20355661 (Version 1)
Quarter: 2022Q1

REPORT INFORMATION
  Report Type: Spontaneous
  Country: GR (occurrence: GR)
  Receive Date: 20220120
  Receipt Date: 20220120
  Transmission Date: 20220424
  Serious: Yes (Hospitalization, Other)
  Sender: FDA-Public Use
  Company Number: GR-BoehringerIngelheim-2022-BI-107359

PATIENT
  Age: 85 Year
  Sex: Male

DRUGS (4)
  1. PRADAXA [Suspect]
     Active Substance: DABIGATRAN ETEXILATE MESYLATE
     Indication: Atrial fibrillation
     Route: 048
     Dates: end: 20220106
  2. BISOPROLOL FUMARATE [Concomitant]
     Active Substance: BISOPROLOL FUMARATE
     Indication: Product used for unknown indication
  3. INSPRA [Concomitant]
     Active Substance: EPLERENONE
     Indication: Product used for unknown indication
  4. LASIX [Concomitant]
     Active Substance: FUROSEMIDE
     Indication: Product used for unknown indication

REACTIONS (3)
  - Dyspnoea [Recovering/Resolving]
  - Hypoxia [Recovering/Resolving]
  - Peripheral artery occlusion [Recovering/Resolving]

NARRATIVE: CASE EVENT DATE: 20220105
